FAERS Safety Report 6615381-8 (Version None)
Quarter: 2010Q1

REPORT INFORMATION
  Report Type: 
  Country: None (occurrence: None)
  Receive Date: 20100305
  Receipt Date: 20090922
  Transmission Date: 20100710
  Serious: No
  Sender: FDA-Public Use
  Company Number: A0808964A

PATIENT
  Sex: Female

DRUGS (1)
  1. REQUIP [Suspect]
     Indication: DRUG USE FOR UNKNOWN INDICATION

REACTIONS (2)
  - ABDOMINAL PAIN UPPER [None]
  - TREMOR [None]
